FAERS Safety Report 15540816 (Version 1)
Quarter: 2018Q4

REPORT INFORMATION
  Report Type: Spontaneous
  Country: US (occurrence: US)
  Receive Date: 20181016
  Receipt Date: 20181016
  Transmission Date: 20190205
  Serious: No
  Sender: FDA-Public Use
  Company Number: None

PATIENT
  Age: 75 Year
  Sex: Female

DRUGS (2)
  1. COSENTYX [Concomitant]
     Active Substance: SECUKINUMAB
  2. CIMZIA [Suspect]
     Active Substance: CERTOLIZUMAB PEGOL

REACTIONS (6)
  - Arthralgia [None]
  - Swelling [None]
  - Psoriasis [None]
  - Joint swelling [None]
  - Vaccination site swelling [None]
  - Back pain [None]

NARRATIVE: CASE EVENT DATE: 20181004
